FAERS Safety Report 5468438-1 (Version None)
Quarter: 2007Q3

REPORT INFORMATION
  Report Type: 
  Country: None (occurrence: None)
  Receive Date: 20070926
  Receipt Date: 20070924
  Transmission Date: 20080115
  Serious: Yes (Hospitalization)
  Sender: FDA-Public Use
  Company Number: FR-BRISTOL-MYERS SQUIBB COMPANY-13918867

PATIENT
  Age: 66 Year
  Sex: Male

DRUGS (2)
  1. AXEPIM [Suspect]
     Indication: BACTERIAL INFECTION
     Route: 042
     Dates: start: 20070909, end: 20070911
  2. VANCOMYCIN [Suspect]
     Indication: ENDOCARDITIS
     Dates: start: 20070828, end: 20070910

REACTIONS (1)
  - RED MAN SYNDROME [None]
